FAERS Safety Report 20379455 (Version 1)
Quarter: 2022Q1

REPORT INFORMATION
  Report Type: Spontaneous
  Country: US (occurrence: None)
  Receive Date: 20220126
  Receipt Date: 20220126
  Transmission Date: 20220423
  Serious: Yes (Hospitalization)
  Sender: FDA-Public Use
  Company Number: None

PATIENT
  Age: 82 Year
  Sex: Male

DRUGS (4)
  1. ESBRIET [Suspect]
     Active Substance: PIRFENIDONE
     Indication: Idiopathic pulmonary fibrosis
     Dosage: FREQUENCY : 3 TIMES A DAY;?
     Route: 048
     Dates: start: 20180803
  2. COREG TAB [Concomitant]
  3. DIGOXIN TAB [Concomitant]
  4. MAG OXIDE TAB [Concomitant]

REACTIONS (3)
  - Eating disorder [None]
  - Hepatic cancer [None]
  - Weight decreased [None]

NARRATIVE: CASE EVENT DATE: 20220120
